FAERS Safety Report 18952217 (Version 3)
Quarter: 2021Q1

REPORT INFORMATION
  Report Type: Report from Study
  Country: US (occurrence: US)
  Receive Date: 20210301
  Receipt Date: 20210319
  Transmission Date: 20210420
  Serious: Yes (Hospitalization)
  Sender: FDA-Public Use
  Company Number: US-ACADIA PHARMACEUTICALS INC.-ACA-2021-PIM-000507

PATIENT
  Age: 77 Year
  Sex: Male

DRUGS (2)
  1. NUPLAZID [Suspect]
     Active Substance: PIMAVANSERIN TARTRATE
     Dosage: 34 MILLIGRAM, QD
     Route: 048
     Dates: start: 202102
  2. NUPLAZID [Suspect]
     Active Substance: PIMAVANSERIN TARTRATE
     Indication: PARKINSON^S DISEASE PSYCHOSIS
     Dosage: 34 MILLIGRAM, QD
     Route: 048
     Dates: start: 20210111

REACTIONS (11)
  - Cognitive disorder [Unknown]
  - Hallucination [Unknown]
  - Confusional state [Unknown]
  - Fatigue [Unknown]
  - Confusional state [Unknown]
  - Vision blurred [Unknown]
  - Hypersomnia [Unknown]
  - Hallucination [Unknown]
  - Constipation [Unknown]
  - Gait disturbance [Unknown]
  - Mental status changes [Unknown]

NARRATIVE: CASE EVENT DATE: 20210118
